FAERS Safety Report 4505877-7 (Version None)
Quarter: 2004Q4

REPORT INFORMATION
  Report Type: 
  Country: None (occurrence: None)
  Receive Date: 20041025
  Receipt Date: 20040305
  Transmission Date: 20050328
  Serious: Yes (Death)
  Sender: FDA-Public Use
  Company Number: US-JNJFOC-20040301846

PATIENT
  Age: 75 Year
  Sex: Male

DRUGS (3)
  1. REMICADE [Suspect]
     Indication: RHEUMATOID ARTHRITIS
     Dosage: INTRAVENOUS
     Route: 042
  2. METHOTREXATE [Concomitant]
  3. STEROIDS (CORTICOSTEROID NOS) [Concomitant]

REACTIONS (3)
  - CYTOMEGALOVIRUS INFECTION [None]
  - LEGIONELLA INFECTION [None]
  - PNEUMOCYSTIS CARINII PNEUMONIA [None]
